FAERS Safety Report 6699398-3 (Version None)
Quarter: 2010Q2

REPORT INFORMATION
  Report Type: 
  Country: None (occurrence: None)
  Receive Date: 20100426
  Receipt Date: 20100412
  Transmission Date: 20101027
  Serious: Yes (Other)
  Sender: FDA-Public Use
  Company Number: US-1181425

PATIENT
  Age: 36 Year
  Sex: Male
  Weight: 240 kg

DRUGS (4)
  1. NEOMYCIN AND POLYMXIN B SULFATES AND HYDROCORTISONE [Suspect]
     Indication: TYMPANIC MEMBRANE PERFORATION
     Dosage: 3 GTT TID ARTICULAR (OTIC)
     Route: 001
     Dates: start: 20100326, end: 20100330
  2. AMOXICILLIN [Concomitant]
  3. BUPROPION HCL [Concomitant]
  4. NICOTINE [Concomitant]

REACTIONS (2)
  - DEAFNESS [None]
  - DRUG PRESCRIBING ERROR [None]
